FAERS Safety Report 17350565 (Version 1)
Quarter: 2020Q1

REPORT INFORMATION
  Report Type: Spontaneous
  Country: ES (occurrence: ES)
  Receive Date: 20200130
  Receipt Date: 20200130
  Transmission Date: 20200409
  Serious: Yes (Other)
  Sender: FDA-Public Use
  Company Number: ES-JNJFOC-20200137009

PATIENT
  Age: 73 Year
  Sex: Female

DRUGS (2)
  1. TRAMADOL/APAP [Suspect]
     Active Substance: ACETAMINOPHEN\TRAMADOL
     Indication: BACK PAIN
     Dosage: INGREDIENT (PARACETAMOL): 325MG; INGREDIENT (TRAMADOL): 37.5MG
     Route: 065
  2. FLUOXETINE [Suspect]
     Active Substance: FLUOXETINE HYDROCHLORIDE
     Indication: DEPRESSED MOOD
     Dosage: 20 MG, 1/DAY
     Route: 065

REACTIONS (4)
  - Dizziness [Unknown]
  - Bundle branch block left [Unknown]
  - Hypertensive crisis [Unknown]
  - Hyponatraemia [Recovered/Resolved]
